FAERS Safety Report 7045189-3 (Version None)
Quarter: 2010Q4

REPORT INFORMATION
  Report Type: 
  Country: None (occurrence: None)
  Receive Date: 20101014
  Receipt Date: 20101008
  Transmission Date: 20110411
  Serious: Yes (Hospitalization)
  Sender: FDA-Public Use
  Company Number: SE-PURDUE-GBR-2010-0007154

PATIENT
  Sex: Female

DRUGS (14)
  1. OXYNORM 10 MG KAPSEL, HARD [Suspect]
     Indication: ARTHRALGIA
     Dosage: 10 MG, DAILY
     Route: 048
  2. GABAPENTIN ACTAVIS [Suspect]
     Indication: PRODUCT USED FOR UNKNOWN INDICATION
     Dosage: 300 MG, TID
     Dates: start: 20100701
  3. GABAPENTIN ACTAVIS [Suspect]
     Dosage: 300 MG, BID
     Dates: start: 20100801
  4. MATRIFEN [Suspect]
     Indication: PRODUCT USED FOR UNKNOWN INDICATION
     Dosage: 25 MCG, Q1H
     Route: 062
  5. SPIRONOLAKTON [Suspect]
     Indication: PRODUCT USED FOR UNKNOWN INDICATION
     Dosage: UNK
     Dates: end: 20100801
  6. ACETYLCYSTEIN ALTERNOVA [Concomitant]
     Dosage: 200 MG, UNK
  7. OMEPRAZOL                          /00661201/ [Concomitant]
  8. PREDNISOLON                        /00016201/ [Concomitant]
     Dosage: 5 MG, UNK
  9. ALVEDON [Concomitant]
     Dosage: 500 MG, UNK
  10. FURIX [Concomitant]
     Dosage: 20 MG, UNK
  11. ASPIRIN [Concomitant]
     Dosage: 75 MG, UNK
  12. LAKTIPEX [Concomitant]
     Dosage: UNK MG, UNK
  13. KALCIPOS-D [Concomitant]
  14. EMCONCOR CHF [Concomitant]
     Dosage: 1.25 MG, UNK

REACTIONS (5)
  - ARTHRALGIA [None]
  - ATRIAL FIBRILLATION [None]
  - DIZZINESS [None]
  - FALL [None]
  - HYPOTENSION [None]
